FAERS Safety Report 5091146-6 (Version None)
Quarter: 2006Q3

REPORT INFORMATION
  Report Type: 
  Country: None (occurrence: None)
  Receive Date: 20060727
  Receipt Date: 20060404
  Transmission Date: 20061208
  Serious: Yes (Other)
  Sender: FDA-Public Use
  Company Number: 2006047577

PATIENT
  Age: 72 Year
  Sex: Female
  Weight: 90.7194 kg

DRUGS (4)
  1. LYRICA [Suspect]
     Indication: NEURALGIA
     Dosage: 150 MG (75 MG,2 IN 1 D),ORAL
     Route: 048
     Dates: start: 20060301, end: 20060402
  2. GABAPENTIN [Suspect]
     Indication: NEURALGIA
     Dosage: 300 MG (300 MG,1 IN 1 D),ORAL
     Route: 048
     Dates: end: 20060301
  3. PROPOXYPHENE HCL AND ACETAMINOPHEN (DEXTROPROPOXYPHENE HYDROCHLORIDE, [Concomitant]
  4. LEVOXYL [Concomitant]

REACTIONS (11)
  - ASTHENIA [None]
  - DIZZINESS [None]
  - EUPHORIC MOOD [None]
  - FATIGUE [None]
  - GAIT DISTURBANCE [None]
  - HEADACHE [None]
  - INSOMNIA [None]
  - MUSCLE SPASMS [None]
  - MYALGIA [None]
  - NEURALGIA [None]
  - SOMNOLENCE [None]
